FAERS Safety Report 7820718-8 (Version None)
Quarter: 2011Q4

REPORT INFORMATION
  Report Type: 
  Country: None (occurrence: None)
  Receive Date: 20111013
  Receipt Date: 20110927
  Transmission Date: 20120403
  Serious: Yes (Hospitalization, Other)
  Sender: FDA-Public Use
  Company Number: 2011MA014574

PATIENT
  Age: 37 Year
  Sex: Female

DRUGS (8)
  1. ALBUTEROL SULFATE [Suspect]
     Indication: ASTHMA
     Dosage: 73 MG;
  2. FLUTICASONE PROPIONATE [Suspect]
     Indication: ASTHMA
  3. SALMETEROL (SALMETEROL) [Suspect]
     Indication: ASTHMA
  4. EFORMOTEROL (FORMOTEROL) [Suspect]
     Indication: ASTHMA
     Dosage: 720 MCG;  ;INH
     Route: 055
  5. PREDNISONE TAB [Suspect]
     Indication: ASTHMA
  6. IPRATROPIUM BROMIDE [Suspect]
     Indication: ASTHMA
     Dosage: ;INH
     Route: 055
  7. ANTIBIOTICS (ANTIBIOTICS) [Suspect]
  8. BUDESONIDE [Suspect]
     Indication: ASTHMA
     Dosage: 24000 MCG; ;INH
     Route: 055

REACTIONS (1)
  - ASTHMA [None]
